FAERS Safety Report 11832888 (Version 1)
Quarter: 2015Q4

REPORT INFORMATION
  Report Type: Report from Study
  Country: CA (occurrence: CA)
  Receive Date: 20151214
  Receipt Date: 20151214
  Transmission Date: 20160305
  Serious: Yes (Hospitalization)
  Sender: FDA-Public Use
  Company Number: CA-JNJFOC-20151209024

PATIENT
  Sex: Female
  Weight: 122.5 kg

DRUGS (1)
  1. REMICADE [Suspect]
     Active Substance: INFLIXIMAB
     Indication: ARTHRITIS
     Dosage: 600 (DOSAGE UNITS UNSPECIFIED) 4 WEEKS
     Route: 042

REACTIONS (2)
  - Sleep apnoea syndrome [Unknown]
  - Infection [Unknown]
